FAERS Safety Report 8167839-0 (Version None)
Quarter: 2012Q1

REPORT INFORMATION
  Report Type: 
  Country: None (occurrence: None)
  Receive Date: 20120227
  Receipt Date: 20120216
  Transmission Date: 20120608
  Serious: Yes (Hospitalization)
  Sender: FDA-Public Use
  Company Number: GB-ROCHE-1008104

PATIENT
  Age: 41 Year
  Sex: Male
  Weight: 92.2 kg

DRUGS (13)
  1. ATORVASTAN [Concomitant]
     Dates: start: 20110401
  2. ENOXAPARIN [Concomitant]
     Dates: start: 20111027, end: 20111031
  3. MOVIPREP [Concomitant]
     Dates: start: 20111027
  4. VEMURAFENIB [Suspect]
     Indication: METASTATIC MALIGNANT MELANOMA
     Dosage: 240MG TABLET
     Route: 048
     Dates: start: 20111026, end: 20120213
  5. AMOXICILLIN AND CLAVULANATE POTASSIUM [Concomitant]
     Dates: start: 20111028
  6. MORPHINE SULFATE [Concomitant]
     Dates: start: 20110905
  7. AMLODIPINE [Concomitant]
     Dates: start: 20110401
  8. DIAZEPAM [Concomitant]
     Dates: start: 20110406
  9. SIMVASTATIN [Concomitant]
     Dates: start: 20110401
  10. ACETAMINOPHEN [Concomitant]
     Dates: start: 20111030
  11. LOSARTAN POTASSIUM [Concomitant]
     Dates: start: 20110401
  12. SENNA [Concomitant]
  13. AMOXICILLIN AND CLAVULANATE POTASSIUM [Concomitant]
     Dates: start: 20111027, end: 20111027

REACTIONS (2)
  - PLEURAL EFFUSION [None]
  - DYSPNOEA [None]
